FAERS Safety Report 8022509-4 (Version None)
Quarter: 2012Q1

REPORT INFORMATION
  Report Type: 
  Country: None (occurrence: None)
  Receive Date: 20120104
  Receipt Date: 20120103
  Transmission Date: 20120608
  Serious: Yes (Hospitalization)
  Sender: FDA-Public Use
  Company Number: US-GLAXOSMITHKLINE-A0745066A

PATIENT
  Age: 60 Year
  Sex: Female
  Weight: 129.5 kg

DRUGS (7)
  1. CLONIDINE [Concomitant]
  2. XENICAL [Concomitant]
  3. GLYBURIDE [Concomitant]
  4. AVANDAMET [Suspect]
     Indication: TYPE 2 DIABETES MELLITUS
     Route: 048
     Dates: start: 20040427, end: 20051001
  5. PRAVACHOL [Concomitant]
  6. AVANDIA [Suspect]
     Indication: TYPE 2 DIABETES MELLITUS
     Route: 048
     Dates: start: 20040420, end: 20050701
  7. ADALAT [Concomitant]

REACTIONS (4)
  - MYOCARDIAL INFARCTION [None]
  - DYSPNOEA [None]
  - SWELLING [None]
  - FATIGUE [None]
